FAERS Safety Report 13204909 (Version 1)
Quarter: 2017Q1

REPORT INFORMATION
  Report Type: Spontaneous
  Country: US (occurrence: US)
  Receive Date: 20170208
  Receipt Date: 20170208
  Transmission Date: 20170428
  Serious: Yes (Other)
  Sender: FDA-Public Use
  Company Number: None

PATIENT
  Age: 40 Year
  Sex: Female
  Weight: 98.1 kg

DRUGS (1)
  1. IMATINIB 400MG [Suspect]
     Active Substance: IMATINIB
     Route: 048

REACTIONS (5)
  - Rash [None]
  - Nausea [None]
  - Vomiting [None]
  - Oral disorder [None]
  - Tongue disorder [None]

NARRATIVE: CASE EVENT DATE: 20170119
